FAERS Safety Report 9299207 (Version 1)
Quarter: 2013Q2

REPORT INFORMATION
  Report Type: Spontaneous
  Country: IT (occurrence: IT)
  Receive Date: 20130520
  Receipt Date: 20130520
  Transmission Date: 20140414
  Serious: Yes (Life-Threatening)
  Sender: FDA-Public Use
  Company Number: IT-TEVA-404403ISR

PATIENT
  Age: 23 Year
  Sex: Female

DRUGS (4)
  1. CITALOPRAM [Suspect]
     Dosage: 15 ML DAILY;
     Route: 048
     Dates: start: 20130416, end: 20130416
  2. LAROXYL [Interacting]
     Dosage: 20 ML DAILY;
     Route: 048
     Dates: start: 20130416, end: 20130416
  3. RIVOTRIL [Interacting]
     Dosage: 10 ML DAILY;
     Route: 048
     Dates: start: 20130416, end: 20130416
  4. CLOTIAZEPAM [Interacting]
     Dosage: 20 ML DAILY;
     Route: 048
     Dates: start: 20130416, end: 20130416

REACTIONS (3)
  - Coma [Recovered/Resolved]
  - Toxicity to various agents [Recovered/Resolved]
  - Suicide attempt [Recovered/Resolved]
